FAERS Safety Report 9255135 (Version 1)
Quarter: 2013Q2

REPORT INFORMATION
  Report Type: Spontaneous
  Country: US (occurrence: US)
  Receive Date: 20130425
  Receipt Date: 20130425
  Transmission Date: 20140414
  Serious: Yes (Other)
  Sender: FDA-Public Use
  Company Number: US-JNJFOC-20130410794

PATIENT
  Sex: 0

DRUGS (7)
  1. DOXORUBICIN [Suspect]
     Indication: B-CELL TYPE ACUTE LEUKAEMIA
     Dosage: CUMULATIVE DOSE OF 300.0 MG/M2; CONSOLIDATION PHASE
     Route: 042
  2. CYCLOPHOSPHAMIDE [Suspect]
     Indication: B-CELL TYPE ACUTE LEUKAEMIA
     Dosage: BEGINNING AT WEEK 7; CYCLE 1
     Route: 065
  3. CYTARABINE [Suspect]
     Indication: B-CELL TYPE ACUTE LEUKAEMIA
     Dosage: LOW DOSE; BEGINNING AT WEEK 7 (CYCLE 1);??HIGH DOSE (CYCLE 2)
     Route: 065
  4. 6-MERCAPTOPURINE [Suspect]
     Indication: B-CELL TYPE ACUTE LEUKAEMIA
     Dosage: AT WEEK 7 CYCLE 1
     Route: 065
  5. ETOPOSIDE [Suspect]
     Indication: B-CELL TYPE ACUTE LEUKAEMIA
     Dosage: HIGH DOSE CYCLE 2
     Route: 065
  6. DEXAMETHASONE [Suspect]
     Indication: B-CELL TYPE ACUTE LEUKAEMIA
     Dosage: HIGH DOSE; CYCLE 2
     Route: 065
  7. L-ASPARAGINASE [Suspect]
     Indication: B-CELL TYPE ACUTE LEUKAEMIA
     Dosage: HIGH DOSE; CYCLE 2; 30 WEEKS OF CONSOLIDATION PHASE
     Route: 065

REACTIONS (2)
  - Acute myeloid leukaemia [Unknown]
  - Off label use [Unknown]
